FAERS Safety Report 5962547-6 (Version None)
Quarter: 2008Q4

REPORT INFORMATION
  Report Type: 
  Country: None (occurrence: None)
  Receive Date: 20081121
  Receipt Date: 20081117
  Transmission Date: 20090506
  Serious: Yes (Death, Hospitalization)
  Sender: FDA-Public Use
  Company Number: PHHY2008IT28173

PATIENT
  Sex: Female

DRUGS (5)
  1. FEMARA [Suspect]
     Indication: BREAST CANCER
     Dosage: 2.5 MG/D
     Route: 048
     Dates: start: 20080409, end: 20081108
  2. HERCEPTIN [Suspect]
     Indication: BREAST CANCER
     Dosage: 550 MG CYCLIC
     Route: 042
     Dates: start: 20080403, end: 20081108
  3. DEPONIT [Concomitant]
     Dosage: 10 MG, UNK
     Route: 062
     Dates: start: 20081101, end: 20081108
  4. BISOPROLOL FUMARATE [Concomitant]
     Dosage: 10 MG, UNK
     Route: 048
     Dates: start: 20081001, end: 20081108
  5. ASPIRIN [Concomitant]
     Dosage: 100 MG, UNK
     Dates: start: 20081101, end: 20081108

REACTIONS (6)
  - AORTIC DISSECTION [None]
  - CARDIAC ARREST [None]
  - CARDIO-RESPIRATORY ARREST [None]
  - CHEST PAIN [None]
  - DEATH [None]
  - RESUSCITATION [None]
